FAERS Safety Report 4983962-3 (Version None)
Quarter: 2006Q1

REPORT INFORMATION
  Report Type: 
  Country: None (occurrence: None)
  Receive Date: 20060301
  Receipt Date: 20051209
  Transmission Date: 20060701
  Serious: No
  Sender: FDA-Public Use
  Company Number: S05-USA-05226-01

PATIENT
  Age: 63 Year
  Sex: Female

DRUGS (4)
  1. NAMENDA [Suspect]
     Dosage: 5 MG QD PO
     Route: 048
     Dates: start: 20051119, end: 20051125
  2. NAMENDA [Suspect]
     Dosage: 5 MG BID PO
     Route: 048
     Dates: start: 20051126, end: 20051202
  3. NAMENDA [Suspect]
     Dosage: 15 MG QD PO
     Route: 048
     Dates: start: 20051203
  4. MULTIPLE MEDICATIONS (NOS) [Concomitant]

REACTIONS (1)
  - DIZZINESS [None]
